FAERS Safety Report 15224850 (Version 1)
Quarter: 2018Q3

REPORT INFORMATION
  Report Type: Spontaneous
  Country: US (occurrence: US)
  Receive Date: 20180731
  Receipt Date: 20180731
  Transmission Date: 20181010
  Serious: No
  Sender: FDA-Public Use
  Company Number: US-BIOGEN-2018BI00551758

PATIENT
  Age: 49 Year
  Sex: Female

DRUGS (2)
  1. TECFIDERA [Interacting]
     Active Substance: DIMETHYL FUMARATE
     Route: 065
     Dates: start: 20180418
  2. TECFIDERA [Suspect]
     Active Substance: DIMETHYL FUMARATE
     Indication: MULTIPLE SCLEROSIS
     Route: 065
     Dates: start: 20141013, end: 20180403

REACTIONS (11)
  - Exposure to mould [Not Recovered/Not Resolved]
  - Dyspnoea [Unknown]
  - Influenza [Unknown]
  - Intentional product misuse [Unknown]
  - Memory impairment [Not Recovered/Not Resolved]
  - Mobility decreased [Unknown]
  - Multiple sclerosis relapse [Unknown]
  - Facial paralysis [Unknown]
  - Multiple sclerosis [Not Recovered/Not Resolved]
  - Feeling abnormal [Unknown]
  - Malaise [Recovered/Resolved]

NARRATIVE: CASE EVENT DATE: 2017
